FAERS Safety Report 13749523 (Version 1)
Quarter: 2017Q3

REPORT INFORMATION
  Report Type: Spontaneous
  Country: DE (occurrence: DE)
  Receive Date: 20170713
  Receipt Date: 20170713
  Transmission Date: 20171127
  Serious: Yes (Life-Threatening)
  Sender: FDA-Public Use
  Company Number: PHHY2017DE103145

PATIENT
  Age: 38 Year
  Sex: Female
  Weight: 54 kg

DRUGS (1)
  1. VOLTAREN [Suspect]
     Active Substance: DICLOFENAC SODIUM
     Indication: ARTHRITIS
     Dosage: 75 MG, QD
     Route: 048
     Dates: start: 20170616

REACTIONS (9)
  - Dysphagia [Recovering/Resolving]
  - Dyspnoea [Recovering/Resolving]
  - Rash [Not Recovered/Not Resolved]
  - Lip swelling [Recovering/Resolving]
  - Oedema mucosal [Recovering/Resolving]
  - Skin warm [Unknown]
  - Swollen tongue [Recovering/Resolving]
  - Pruritus [Not Recovered/Not Resolved]
  - Generalised erythema [Unknown]

NARRATIVE: CASE EVENT DATE: 201706
